FAERS Safety Report 4655992-2 (Version None)
Quarter: 2005Q2

REPORT INFORMATION
  Report Type: 
  Country: None (occurrence: None)
  Receive Date: 20050505
  Receipt Date: 20050419
  Transmission Date: 20051028
  Serious: Yes (Hospitalization)
  Sender: FDA-Public Use
  Company Number: 2005BI002058

PATIENT
  Age: 54 Year
  Sex: Female
  Weight: 59 kg

DRUGS (6)
  1. AVONEX [Suspect]
     Indication: MULTIPLE SCLEROSIS
     Dosage: 30 UG; QW; IM
     Route: 030
     Dates: start: 20041209
  2. IBUPROFEN [Concomitant]
  3. L-THYROXIN [Concomitant]
  4. FOLIC ACID [Concomitant]
  5. ACETYL SALICYLIC ACID USP BAT [Concomitant]
  6. CIPRAMIL [Concomitant]

REACTIONS (11)
  - ACCIDENT [None]
  - DEPRESSION [None]
  - DIFFICULTY IN WALKING [None]
  - EXANTHEM [None]
  - FALL [None]
  - HERPES ZOSTER [None]
  - MOBILITY DECREASED [None]
  - MULTIPLE SCLEROSIS RELAPSE [None]
  - OSTEOPOROSIS [None]
  - PARESIS [None]
  - UPPER LIMB FRACTURE [None]
